FAERS Safety Report 14287656 (Version 1)
Quarter: 2017Q4

REPORT INFORMATION
  Report Type: Spontaneous
  Country: US (occurrence: US)
  Receive Date: 20171215
  Receipt Date: 20171215
  Transmission Date: 20180321
  Serious: Yes (Other)
  Sender: FDA-Public Use
  Company Number: US-AMGEN-USASP2017184682

PATIENT
  Age: 4 Year
  Sex: Female

DRUGS (2)
  1. NPLATE [Suspect]
     Active Substance: ROMIPLOSTIM
     Indication: PRODUCT USED FOR UNKNOWN INDICATION
     Dosage: 1 MCG/KG, QWK
     Route: 065
     Dates: start: 20171120
  2. NPLATE [Suspect]
     Active Substance: ROMIPLOSTIM
     Dosage: 40 MCG, UNK
     Route: 065
     Dates: start: 20171211

REACTIONS (2)
  - Off label use [Unknown]
  - Platelet count decreased [Not Recovered/Not Resolved]

NARRATIVE: CASE EVENT DATE: 2017
